FAERS Safety Report 7965202 (Version 9)
Quarter: 2012Q4

REPORT INFORMATION
  Report Type: Report from Study
  Country: FR (occurrence: FR)
  Receive Date: 20110527
  Receipt Date: 20121206
  Transmission Date: 20130627
  Serious: Yes (Hospitalization)
  Sender: FDA-Public Use
  Company Number: FR-ABBOTT-11P-056-0728062-00

PATIENT
  Sex: Male

DRUGS (6)
  1. HUMIRA [Suspect]
     Indication: PSORIASIS
     Route: 058
     Dates: start: 20100415, end: 20110125
  2. HUMIRA [Concomitant]
     Indication: PSORIASIS
     Route: 058
     Dates: start: 20080226
  3. NEBILOX [Concomitant]
     Indication: CARDIAC FAILURE
  4. PLAVIX [Concomitant]
     Indication: ARTHRITIS
  5. CRESTOR [Concomitant]
     Indication: ARTHRITIS
  6. FONZYLANE [Concomitant]
     Indication: ARTHRITIS
     Dates: end: 2010

REACTIONS (2)
  - Vascular graft thrombosis [Recovered/Resolved]
  - Peripheral artery thrombosis [Recovered/Resolved]
